FAERS Safety Report 8984771 (Version 1)
Quarter: 2012Q4

REPORT INFORMATION
  Report Type: 
  Country: FR (occurrence: FR)
  Receive Date: 20121225
  Receipt Date: 20121225
  Transmission Date: 20130627
  Serious: Yes (Hospitalization)
  Sender: FDA-Public Use
  Company Number: FR-JNJFOC-20121207684

PATIENT
  Age: 72 Year
  Sex: Male

DRUGS (3)
  1. ZYTIGA [Suspect]
     Indication: NEOPLASM PROSTATE
     Route: 048
     Dates: start: 20120521, end: 20120821
  2. ZYTIGA [Suspect]
     Indication: NEOPLASM PROSTATE
     Route: 048
     Dates: start: 20121106
  3. ZYTIGA [Suspect]
     Indication: NEOPLASM PROSTATE
     Route: 048
     Dates: start: 20120821, end: 20121029

REACTIONS (3)
  - Oedema peripheral [Recovered/Resolved]
  - Dyspnoea [Recovered/Resolved]
  - Deep vein thrombosis [Recovered/Resolved]
